FAERS Safety Report 9369092 (Version 1)
Quarter: 2013Q2

REPORT INFORMATION
  Report Type: Report from Study
  Country: US (occurrence: US)
  Receive Date: 20130626
  Receipt Date: 20130626
  Transmission Date: 20140414
  Serious: Yes (Hospitalization)
  Sender: FDA-Public Use
  Company Number: PHEH2013US013644

PATIENT
  Age: 27 Year
  Sex: Female

DRUGS (1)
  1. TOBI [Suspect]
     Dosage: 300 MG, BID
     Dates: start: 201302, end: 201302

REACTIONS (3)
  - Oxygen saturation decreased [Unknown]
  - Blood glucose fluctuation [Unknown]
  - Cough [Unknown]
